FAERS Safety Report 5707019-9 (Version None)
Quarter: 2008Q2

REPORT INFORMATION
  Report Type: 
  Country: None (occurrence: None)
  Receive Date: 20080416
  Receipt Date: 20080409
  Transmission Date: 20081010
  Serious: Yes (Hospitalization)
  Sender: FDA-Public Use
  Company Number: A0721861A

PATIENT
  Age: 11 Year
  Sex: Female

DRUGS (3)
  1. LAMICTAL [Suspect]
     Indication: BIPOLAR DISORDER
     Dosage: 100MG PER DAY
     Route: 048
     Dates: start: 20080101
  2. BUPROPION HCL [Concomitant]
  3. ABILIFY [Concomitant]

REACTIONS (2)
  - LYMPHADENOPATHY [None]
  - ROAD TRAFFIC ACCIDENT [None]
